FAERS Safety Report 5441742-9 (Version None)
Quarter: 2007Q3

REPORT INFORMATION
  Report Type: 
  Country: None (occurrence: None)
  Receive Date: 20070829
  Receipt Date: 20070829
  Transmission Date: 20080115
  Serious: Yes (Hospitalization)
  Sender: FDA-Public Use
  Company Number: None

PATIENT
  Sex: Male
  Weight: 84.5 kg

DRUGS (5)
  1. CYCLOPHOSPHAMIDE [Suspect]
     Dosage: 1500 MG
  2. DOXORUBICIN HYDROCHLORIDE [Concomitant]
  3. PREDNISONE [Concomitant]
  4. RITUXIMAB (MOAB C2B8 ANTI CD20, CHIMERIC) [Concomitant]
  5. VINCRISTINE SULFATE [Concomitant]
     Dosage: 2 MG

REACTIONS (4)
  - ANOREXIA [None]
  - HYPERGLYCAEMIA [None]
  - NAUSEA [None]
  - WEIGHT DECREASED [None]
